FAERS Safety Report 6793457-2 (Version None)
Quarter: 2010Q2

REPORT INFORMATION
  Report Type: 
  Country: None (occurrence: None)
  Receive Date: 20100624
  Receipt Date: 20100317
  Transmission Date: 20101027
  Serious: Yes (Death)
  Sender: FDA-Public Use
  Company Number: US-MYLANLABS-2010S1004715

PATIENT
  Age: 56 Year
  Sex: Female

DRUGS (7)
  1. CLOZAPINE [Suspect]
     Dates: start: 20061001
  2. RAMIPRIL [Concomitant]
  3. LIPITOR [Concomitant]
  4. VALPROIC ACID [Concomitant]
  5. SEDAPAP /00960501/ [Concomitant]
     Dosage: PRN
  6. ARTHROTEC [Concomitant]
     Dosage: 200MG
  7. LOVAZA [Concomitant]
     Dosage: 2 CAPSULES

REACTIONS (1)
  - DEATH [None]
